FAERS Safety Report 4533547-8 (Version None)
Quarter: 2004Q4

REPORT INFORMATION
  Report Type: 
  Country: None (occurrence: None)
  Receive Date: 20041221
  Receipt Date: 20041213
  Transmission Date: 20050328
  Serious: Yes (Disabling, Other)
  Sender: FDA-Public Use
  Company Number: PHFR2004GB04565

PATIENT
  Age: 45 Year
  Sex: Female

DRUGS (1)
  1. TERBINAFINE HCL [Suspect]
     Indication: FUNGAL INFECTION
     Dosage: 250 MG, QD
     Route: 048
     Dates: start: 20041018, end: 20041105

REACTIONS (4)
  - ARTHRALGIA [None]
  - DYSPHAGIA [None]
  - RASH [None]
  - SWELLING [None]
